FAERS Safety Report 22297490 (Version 3)
Quarter: 2023Q4

REPORT INFORMATION
  Report Type: Other
  Country: IN (occurrence: None)
  Receive Date: 20230509
  Receipt Date: 20231101
  Transmission Date: 20240110
  Serious: Yes (Hospitalization)
  Sender: FDA-Public Use
  Company Number: IN-ROCHE-3344766

PATIENT
  Age: 66 Year
  Sex: Female

DRUGS (7)
  1. TECENTRIQ [Suspect]
     Active Substance: ATEZOLIZUMAB
     Indication: Hepatocellular carcinoma
     Route: 042
     Dates: start: 20230315, end: 20230411
  2. LENVATINIB [Concomitant]
     Active Substance: LENVATINIB
  3. URSODIOL [Concomitant]
     Active Substance: URSODIOL
  4. CALCIUM CARBONATE\CHOLECALCIFEROL [Concomitant]
     Active Substance: CALCIUM CARBONATE\CHOLECALCIFEROL
  5. LEVOTHYROXINE [Concomitant]
     Active Substance: LEVOTHYROXINE
  6. RIFAXIMIN [Concomitant]
     Active Substance: RIFAXIMIN
  7. ESOMEPRAZOLE [Concomitant]
     Active Substance: ESOMEPRAZOLE

REACTIONS (4)
  - Blood creatinine increased [Unknown]
  - Loss of consciousness [Unknown]
  - Renal impairment [Unknown]
  - Blood creatinine decreased [Unknown]
